FAERS Safety Report 9197489 (Version 2)
Quarter: 2013Q2

REPORT INFORMATION
  Report Type: Spontaneous
  Country: NO (occurrence: NO)
  Receive Date: 20130328
  Receipt Date: 20130606
  Transmission Date: 20140414
  Serious: Yes (Death, Life-Threatening)
  Sender: FDA-Public Use
  Company Number: NO-ROCHE-1207000

PATIENT
  Age: 73 Year
  Sex: Female

DRUGS (5)
  1. RITUXIMAB [Suspect]
     Indication: CHRONIC LYMPHOCYTIC LEUKAEMIA
     Route: 041
     Dates: start: 20121015, end: 20130107
  2. CYCLOPHOSPHAMIDE [Suspect]
     Indication: CHRONIC LYMPHOCYTIC LEUKAEMIA
     Dosage: 400 MG ONCE A DAY ON DAY 1-2-3
     Route: 048
     Dates: start: 20121015, end: 20130107
  3. FLUDARABINE [Suspect]
     Indication: CHRONIC LYMPHOCYTIC LEUKAEMIA
     Dosage: 40 MG ONCE A DAY ON DAY 1-2-3
     Route: 048
     Dates: start: 20121015, end: 20130107
  4. BACTRIM [Concomitant]
     Indication: PROPHYLAXIS
     Dosage: 2 DOSAGE FORMS TWICE A DAY ON SATURDAYS/SUNDAYS
     Route: 065
  5. VALTREX [Concomitant]
     Indication: PROPHYLAXIS
     Route: 048
     Dates: start: 20121015

REACTIONS (5)
  - Autoimmune haemolytic anaemia [Fatal]
  - Subdural haemorrhage [Fatal]
  - Autoimmune thrombocytopenia [Fatal]
  - Cerebral haemorrhage [Fatal]
  - Haemolysis [Not Recovered/Not Resolved]
